FAERS Safety Report 18041151 (Version 1)
Quarter: 2020Q3

REPORT INFORMATION
  Report Type: Spontaneous
  Country: LT (occurrence: LT)
  Receive Date: 20200718
  Receipt Date: 20200718
  Transmission Date: 20201103
  Serious: Yes (Life-Threatening, Hospitalization, Other)
  Sender: FDA-Public Use
  Company Number: NVSC2020LT172170

PATIENT
  Age: 55 Year
  Sex: Male

DRUGS (1)
  1. VALSARTAN AND HYDROCHLOROTHIAZIDE [Suspect]
     Active Substance: HYDROCHLOROTHIAZIDE\VALSARTAN
     Indication: HYPERTENSION
     Dosage: 1 DF
     Route: 065

REACTIONS (10)
  - Liver injury [Recovered/Resolved]
  - Cholelithiasis [Recovered/Resolved]
  - Hyponatraemia [Recovered/Resolved]
  - Disorientation [Recovered/Resolved]
  - Agitation [Recovered/Resolved]
  - Acute respiratory failure [Recovered/Resolved]
  - Hepatic steatosis [Recovered/Resolved]
  - Nervous system disorder [Recovered/Resolved]
  - Alcoholic seizure [Recovered/Resolved]
  - Brain oedema [Recovered/Resolved]
